FAERS Safety Report 15468707 (Version 3)
Quarter: 2018Q4

REPORT INFORMATION
  Report Type: Spontaneous
  Country: JP (occurrence: JP)
  Receive Date: 20181005
  Receipt Date: 20181023
  Transmission Date: 20190204
  Serious: Yes (Death, Hospitalization, Other)
  Sender: FDA-Public Use
  Company Number: JP-ASTRAZENECA-2018SE81534

PATIENT
  Age: 27894 Day
  Sex: Male
  Weight: 41 kg

DRUGS (8)
  1. MARZULENE-S [Concomitant]
     Active Substance: SODIUM GUALENATE
     Indication: GASTRIC ULCER
     Route: 048
     Dates: start: 20171010, end: 20180709
  2. TELMISARTAN. [Concomitant]
     Active Substance: TELMISARTAN
     Indication: HYPERTENSION
     Route: 048
     Dates: start: 20150317, end: 20180710
  3. PARIET [Concomitant]
     Active Substance: RABEPRAZOLE SODIUM
     Indication: GASTRIC ULCER
     Route: 048
     Dates: start: 20170718, end: 20180710
  4. MAGNESIUM OXIDE. [Concomitant]
     Active Substance: MAGNESIUM OXIDE
     Indication: CONSTIPATION
     Route: 048
     Dates: start: 20180612, end: 20180710
  5. OXYCONTIN [Concomitant]
     Active Substance: OXYCODONE HYDROCHLORIDE
     Indication: NON-SMALL CELL LUNG CANCER
     Route: 048
     Dates: start: 20180123, end: 20180709
  6. TAGRISSO [Suspect]
     Active Substance: OSIMERTINIB
     Indication: NON-SMALL CELL LUNG CANCER
     Route: 048
     Dates: start: 20180220, end: 20180618
  7. LOXOPROFEN [Concomitant]
     Active Substance: LOXOPROFEN
     Indication: NON-SMALL CELL LUNG CANCER
     Route: 048
     Dates: start: 20171219, end: 20180709
  8. NOVAMIN (PROCHLORPERAZINE) [Concomitant]
     Active Substance: PROCHLORPERAZINE
     Indication: NON-SMALL CELL LUNG CANCER
     Route: 048
     Dates: start: 20180109, end: 20180709

REACTIONS (3)
  - Malignant neoplasm progression [Fatal]
  - Altered state of consciousness [Recovered/Resolved]
  - Hyponatraemia [Recovered/Resolved]

NARRATIVE: CASE EVENT DATE: 20180618
